FAERS Safety Report 23257100 (Version 1)
Quarter: 2023Q4

REPORT INFORMATION
  Report Type: Spontaneous
  Country: IT (occurrence: IT)
  Receive Date: 20231204
  Receipt Date: 20231204
  Transmission Date: 20240109
  Serious: Yes (Hospitalization)
  Sender: FDA-Public Use
  Company Number: IT-SAMSUNG BIOEPIS-SB-2023-31968

PATIENT
  Age: 80 Year
  Sex: Female

DRUGS (2)
  1. ETANERCEPT [Suspect]
     Active Substance: ETANERCEPT
     Indication: Rheumatoid arthritis
     Route: 065
  2. ETANERCEPT [Suspect]
     Active Substance: ETANERCEPT
     Dosage: INCREASED DOSE
     Route: 065

REACTIONS (4)
  - Retroperitoneal fibrosis [Recovering/Resolving]
  - Renal impairment [Recovered/Resolved]
  - Hydronephrosis [Recovering/Resolving]
  - Product use issue [Unknown]
